FAERS Safety Report 5507202-1 (Version None)
Quarter: 2007Q4

REPORT INFORMATION
  Report Type: 
  Country: None (occurrence: None)
  Receive Date: 20071102
  Receipt Date: 20071018
  Transmission Date: 20080405
  Serious: Yes (Other)
  Sender: FDA-Public Use
  Company Number: GXKR2007US08985

PATIENT
  Age: 40 Year
  Sex: Male
  Weight: 64 kg

DRUGS (7)
  1. CEFTRIAXONE [Suspect]
     Indication: MENINGITIS
     Dosage: 2 G, Q12H, INTRAVENOUS, 1 G, Q12H, INTRAVENOUS
     Route: 042
  2. CEFTRIAXONE [Suspect]
     Indication: MENINGITIS
     Dosage: 2 G, Q12H, INTRAVENOUS, 1 G, Q12H, INTRAVENOUS
     Route: 042
  3. VANCOMYCIN [Suspect]
     Indication: MENINGITIS
     Dosage: 1 G, Q12H, INTRAVENOUS
     Route: 042
  4. ACYCLOVIR [Concomitant]
  5. PHENYTOIN [Concomitant]
  6. LEVETIRACETAM [Concomitant]
  7. SODIUM CHLORIDE 0.9% [Concomitant]

REACTIONS (2)
  - ACUTE GENERALISED EXANTHEMATOUS PUSTULOSIS [None]
  - NEPHRITIS INTERSTITIAL [None]
